FAERS Safety Report 19876992 (Version 1)
Quarter: 2021Q3

REPORT INFORMATION
  Report Type: Spontaneous
  Country: US (occurrence: US)
  Receive Date: 20210924
  Receipt Date: 20210924
  Transmission Date: 20211014
  Serious: Yes (Other)
  Sender: FDA-Public Use
  Company Number: US-SA-2021SA313744

PATIENT
  Sex: Female

DRUGS (21)
  1. KETOROLAC [Concomitant]
     Active Substance: KETOROLAC TROMETHAMINE
     Dosage: 60 MG
  2. COVID?19 VACCINE [Concomitant]
  3. SPORANOX [Concomitant]
     Active Substance: ITRACONAZOLE
     Dosage: 100MG
  4. ALBUTEROL SULFATE. [Concomitant]
     Active Substance: ALBUTEROL SULFATE
     Dosage: UNK
  5. PROMETHAZINE HCL [Concomitant]
     Active Substance: PROMETHAZINE HYDROCHLORIDE
     Dosage: UNK
  6. PLAQUENIL [Concomitant]
     Active Substance: HYDROXYCHLOROQUINE SULFATE
     Dosage: 200MG
  7. BUDESONIDE. [Concomitant]
     Active Substance: BUDESONIDE
     Dosage: UNK
  8. AFRIN [Concomitant]
     Active Substance: OXYMETAZOLINE
     Dosage: UNK
  9. PROVENTIL [Concomitant]
     Active Substance: ALBUTEROL
     Dosage: 375MG
  10. SYNTHROID [Concomitant]
     Active Substance: LEVOTHYROXINE SODIUM
     Dosage: 137 UG
  11. PHENTERMINE. [Concomitant]
     Active Substance: PHENTERMINE
     Dosage: 37.5MG
  12. NASACORT ALLERGY 24HR [Concomitant]
     Active Substance: TRIAMCINOLONE ACETONIDE
     Dosage: UNK
  13. TESSALON [Concomitant]
     Active Substance: BENZONATATE
     Dosage: 100MG
  14. CHOLECALCIFEROL [Concomitant]
     Active Substance: CHOLECALCIFEROL
     Dosage: UNK
  15. POTASSIUM CHLORIDE. [Concomitant]
     Active Substance: POTASSIUM CHLORIDE
     Dosage: UNK
  16. WELLBUTRIN [Concomitant]
     Active Substance: BUPROPION HYDROCHLORIDE
     Dosage: 150MG
  17. DUPIXENT [Suspect]
     Active Substance: DUPILUMAB
     Indication: ASTHMA
     Dosage: UNK
     Route: 058
  18. LEVAQUIN [Concomitant]
     Active Substance: LEVOFLOXACIN
     Dosage: 750 MG
  19. LEVOFLOXACIN. [Concomitant]
     Active Substance: LEVOFLOXACIN
     Dosage: 500 MG
  20. GAMUNEX [Suspect]
     Active Substance: HUMAN IMMUNOGLOBULIN G
     Dosage: UNK
  21. IPRATROPIUM [Concomitant]
     Active Substance: IPRATROPIUM
     Dosage: 0.5?2.5 SOLUTION

REACTIONS (9)
  - Epstein-Barr viraemia [Unknown]
  - Herpes zoster [Recovered/Resolved]
  - Basal cell carcinoma [Unknown]
  - Epistaxis [Unknown]
  - Infusion site pain [Unknown]
  - Ocular hyperaemia [Unknown]
  - Eye irritation [Unknown]
  - Foreign body sensation in eyes [Unknown]
  - Dry eye [Unknown]
